FAERS Safety Report 18880463 (Version 1)
Quarter: 2021Q1

REPORT INFORMATION
  Report Type: Spontaneous
  Country: FR (occurrence: FR)
  Receive Date: 20210211
  Receipt Date: 20210211
  Transmission Date: 20210420
  Serious: Yes (Other)
  Sender: FDA-Public Use
  Company Number: FR-ROCHE-2767307

PATIENT
  Age: 4 Year
  Sex: Male
  Weight: 22.8 kg

DRUGS (2)
  1. RIVOTRIL [Suspect]
     Active Substance: CLONAZEPAM
     Indication: PRODUCT USED FOR UNKNOWN INDICATION
     Route: 041
     Dates: start: 20210126, end: 20210126
  2. GLUCOSE [Suspect]
     Active Substance: DEXTROSE
     Indication: FLUID OVERLOAD
     Route: 041
     Dates: start: 20210126, end: 20210126

REACTIONS (1)
  - Injection site extravasation [Recovered/Resolved]

NARRATIVE: CASE EVENT DATE: 20210126
